FAERS Safety Report 7250039-6 (Version None)
Quarter: 2011Q1

REPORT INFORMATION
  Report Type: 
  Country: None (occurrence: None)
  Receive Date: 20110128
  Receipt Date: 20110119
  Transmission Date: 20110831
  Serious: Yes (Other)
  Sender: FDA-Public Use
  Company Number: US-SANOFI-AVENTIS-2011SA004405

PATIENT
  Age: 67 Year
  Sex: Male

DRUGS (5)
  1. LISINOPRIL [Concomitant]
  2. MULTAQ [Suspect]
     Indication: ATRIAL FLUTTER
     Route: 048
     Dates: start: 20100925
  3. ASPIRIN [Concomitant]
  4. MULTAQ [Suspect]
     Indication: ATRIAL FIBRILLATION
     Route: 048
     Dates: start: 20100925
  5. COUMADIN [Concomitant]
     Dosage: 5 MG DAILY AND 7.5MG TWICE A WEEK

REACTIONS (3)
  - ATRIAL FIBRILLATION [None]
  - TOOTH DISORDER [None]
  - EJECTION FRACTION DECREASED [None]
